FAERS Safety Report 16934630 (Version 1)
Quarter: 2019Q4

REPORT INFORMATION
  Report Type: Report from Study
  Country: None (occurrence: BR)
  Receive Date: 20191018
  Receipt Date: 20191018
  Transmission Date: 20200122
  Serious: Yes (Death, Other)
  Sender: FDA-Public Use
  Company Number: BR-ABBVIE-19K-020-2968529-00

PATIENT
  Sex: Female
  Weight: 83 kg

DRUGS (2)
  1. HUMIRA [Suspect]
     Active Substance: ADALIMUMAB
     Indication: PSORIATIC ARTHROPATHY
     Route: 058
     Dates: start: 20180404, end: 20190902
  2. AZATHIOPRINE. [Suspect]
     Active Substance: AZATHIOPRINE
     Indication: PRODUCT USED FOR UNKNOWN INDICATION
     Route: 065

REACTIONS (6)
  - Immunodeficiency [Not Recovered/Not Resolved]
  - Sepsis [Not Recovered/Not Resolved]
  - Infection [Unknown]
  - Renal failure [Not Recovered/Not Resolved]
  - Hepatitis fulminant [Fatal]
  - Pneumonia [Not Recovered/Not Resolved]
